FAERS Safety Report 8972699 (Version 1)
Quarter: 2012Q4

REPORT INFORMATION
  Report Type: 
  Country: US (occurrence: US)
  Receive Date: 20121219
  Receipt Date: 20121219
  Transmission Date: 20130627
  Serious: Yes (Hospitalization)
  Sender: FDA-Public Use
  Company Number: US-BAYER-2012-132196

PATIENT
  Age: 48 Year
  Sex: Female

DRUGS (9)
  1. YASMIN [Suspect]
     Indication: DYSFUNCTIONAL UTERINE BLEEDING
  2. YASMIN [Suspect]
     Indication: FIBROIDS
  3. PROVERA [Concomitant]
     Indication: DYSFUNCTIONAL UTERINE BLEEDING
  4. LEVAQUIN [Concomitant]
     Dosage: 750 mg, daily
  5. XOPENEX [Concomitant]
  6. ATROVENT [Concomitant]
  7. SINGULAIR [Concomitant]
  8. SYNTHROID [Concomitant]
     Indication: INCREASED TSH
  9. BUDESONIDE [Concomitant]

REACTIONS (2)
  - Deep vein thrombosis [Recovered/Resolved]
  - Pulmonary embolism [None]
